FAERS Safety Report 5736173-8 (Version None)
Quarter: 2008Q2

REPORT INFORMATION
  Report Type: 
  Country: None (occurrence: None)
  Receive Date: 20080513
  Receipt Date: 20080429
  Transmission Date: 20081010
  Serious: Yes (Hospitalization)
  Sender: FDA-Public Use
  Company Number: US-CVT-080029

PATIENT

DRUGS (21)
  1. RANEXA [Suspect]
     Indication: ISCHAEMIA
     Dosage: 1000 MG, BID
     Route: 048
     Dates: start: 20080213, end: 20080307
  2. PROGRAF [Interacting]
     Indication: HEART TRANSPLANT
     Dosage: 0.5 MG, BID
     Route: 048
  3. ALLOPURINOL [Concomitant]
     Dosage: 100 MG, QD
     Route: 048
  4. AMLODIPINE [Concomitant]
     Dosage: 5 MG, QD
     Route: 048
  5. ASPIRIN [Concomitant]
     Dosage: 81 MG, QD
     Route: 048
  6. CALCIUM                            /00009901/ [Concomitant]
     Dosage: 500 MG, BID
     Route: 048
  7. COREG [Concomitant]
     Dosage: 3.125 MG, QD IN AM
     Route: 048
  8. COREG [Concomitant]
     Dosage: 6.25 MG, QD AT NIGHT
     Route: 048
  9. CELLCEPT [Concomitant]
     Dosage: 500 MG, BID
     Route: 048
  10. CITALOPRAM                         /00582601/ [Concomitant]
     Dosage: 20 MG, QD
     Route: 048
  11. DOC-Q-LAX [Concomitant]
     Dosage: 100 MG, BID
     Route: 048
  12. LASIX [Concomitant]
     Dosage: 40 MG, BID
     Route: 048
  13. LANTUS [Concomitant]
     Indication: DIABETES MELLITUS
     Dosage: 35 UNITS, QD
     Route: 058
  14. MAG-OX [Concomitant]
     Dosage: 400 MG, BID
     Route: 048
  15. METOLAZONE [Concomitant]
     Dosage: 2.5 MG, QD
     Route: 048
  16. NOVOLOG [Concomitant]
     Indication: DIABETES MELLITUS
     Dosage: SLIDING SCALE WITH MEALS
     Route: 058
  17. POTASSIUM CHLORIDE [Concomitant]
     Dosage: 10 MEQ, BID
     Route: 048
  18. PROTONIX                           /01263201/ [Concomitant]
     Dosage: 40 MG, QD
     Route: 048
  19. PLAVIX [Concomitant]
     Indication: CAROTID ARTERIOSCLEROSIS
     Dosage: 75 MG, QD
     Route: 048
  20. PRAVACHOL [Concomitant]
     Dosage: 10 MG, QD
     Route: 048
  21. PREDNISONE                         /00044701/ [Concomitant]
     Dosage: 0.5 TABLET, QD
     Route: 048

REACTIONS (16)
  - ASTHENIA [None]
  - ATRIAL FIBRILLATION [None]
  - CAROTID ARTERY STENOSIS [None]
  - CONDUCTION DISORDER [None]
  - CONFUSIONAL STATE [None]
  - DIZZINESS [None]
  - DRUG INTERACTION [None]
  - DRUG TOXICITY [None]
  - EXCORIATION [None]
  - FALL [None]
  - HYPOKALAEMIA [None]
  - IMMUNOSUPPRESSANT DRUG LEVEL INCREASED [None]
  - MOUTH INJURY [None]
  - RENAL FAILURE [None]
  - SYNCOPE [None]
  - TREMOR [None]
